FAERS Safety Report 7206519-2 (Version None)
Quarter: 2011Q1

REPORT INFORMATION
  Report Type: 
  Country: None (occurrence: None)
  Receive Date: 20110103
  Receipt Date: 20101222
  Transmission Date: 20110831
  Serious: No
  Sender: FDA-Public Use
  Company Number: CA-JNJFOC-20101207866

PATIENT
  Age: 86 Year
  Sex: Female

DRUGS (2)
  1. DURAGESIC-50 [Suspect]
     Indication: ILL-DEFINED DISORDER
     Route: 062
     Dates: start: 20101214
  2. DURAGESIC-50 [Suspect]
     Route: 062
     Dates: start: 20101214

REACTIONS (1)
  - INAPPROPRIATE SCHEDULE OF DRUG ADMINISTRATION [None]
